FAERS Safety Report 4605088-0 (Version None)
Quarter: 2005Q1

REPORT INFORMATION
  Report Type: 
  Country: None (occurrence: None)
  Receive Date: 20050311
  Receipt Date: 20050210
  Transmission Date: 20050727
  Serious: Yes (Other)
  Sender: FDA-Public Use
  Company Number: JP-NOVOPROD-242200

PATIENT
  Age: 11 Year
  Sex: Female
  Weight: 32 kg

DRUGS (2)
  1. NOVORAPID CHU FLEXPEN [Suspect]
     Indication: DIABETES MELLITUS INSULIN-DEPENDENT
     Dosage: 17-20
     Route: 058
     Dates: start: 20050105
  2. NOVOLIN N [Suspect]
     Indication: DIABETES MELLITUS INSULIN-DEPENDENT
     Dosage: 8 IU, QD
     Route: 058
     Dates: start: 20050105

REACTIONS (4)
  - ASTHENOPIA [None]
  - CONVULSION [None]
  - DYSPHONIA [None]
  - HYPOGLYCAEMIA [None]
